FAERS Safety Report 5723167-1 (Version None)
Quarter: 2008Q2

REPORT INFORMATION
  Report Type: 
  Country: None (occurrence: None)
  Receive Date: 20080430
  Receipt Date: 20080421
  Transmission Date: 20081010
  Serious: Yes (Death, Hospitalization, Other)
  Sender: FDA-Public Use
  Company Number: FR-ELI_LILLY_AND_COMPANY-FR200802001609

PATIENT
  Age: 55 Year
  Sex: Male
  Weight: 70 kg

DRUGS (7)
  1. ALIMTA [Suspect]
     Indication: NON-SMALL CELL LUNG CANCER
     Dosage: 500 MG/M2, OTHER
     Route: 042
     Dates: start: 20071212
  2. FOLIC ACID [Concomitant]
     Indication: VITAMIN SUPPLEMENTATION
     Dosage: UNK, UNKNOWN
     Route: 065
  3. VITAMIN B-12 [Concomitant]
     Indication: VITAMIN SUPPLEMENTATION
     Dosage: UNK, UNKNOWN
     Route: 065
  4. CORTICOSTEROID NOS [Concomitant]
     Indication: PROPHYLAXIS
     Dosage: UNK, UNKNOWN
     Route: 065
  5. ZOMETA [Concomitant]
     Indication: METASTASES TO BONE
     Dosage: 4 MG, OTHER
     Route: 042
     Dates: start: 20070101
  6. DURAGESIC-100 [Concomitant]
     Indication: PAIN
     Dosage: 100 UG, OTHER
     Route: 058
     Dates: start: 20070101
  7. ZOPHREN [Concomitant]
     Dosage: 8 MG, OTHER
     Route: 065
     Dates: start: 20070101

REACTIONS (5)
  - BONE MARROW FAILURE [None]
  - ECZEMA [None]
  - MUCOSAL INFLAMMATION [None]
  - PYREXIA [None]
  - STAPHYLOCOCCAL SEPSIS [None]
